FAERS Safety Report 5935357-3 (Version None)
Quarter: 2008Q4

REPORT INFORMATION
  Report Type: 
  Country: None (occurrence: None)
  Receive Date: 20081029
  Receipt Date: 20081029
  Transmission Date: 20090506
  Serious: Yes (Hospitalization)
  Sender: FDA-Public Use
  Company Number: None

PATIENT
  Sex: Female
  Weight: 75.8 kg

DRUGS (1)
  1. TEMOZOLOMIDE [Suspect]
     Dosage: 3045 MG

REACTIONS (1)
  - ASTHENIA [None]
